FAERS Safety Report 7542954-0 (Version None)
Quarter: 2011Q2

REPORT INFORMATION
  Report Type: 
  Country: None (occurrence: None)
  Receive Date: 20110613
  Receipt Date: 20110531
  Transmission Date: 20111010
  Serious: Yes (Hospitalization, Other)
  Sender: FDA-Public Use
  Company Number: PHEH2004US10740

PATIENT

DRUGS (52)
  1. ZOMETA [Suspect]
     Indication: METASTASES TO BONE
     Dosage: MONTHLY
     Route: 042
     Dates: start: 20010101, end: 20040601
  2. GLUCOVANCE [Concomitant]
     Indication: DIABETES MELLITUS
  3. WELLBUTRIN [Concomitant]
     Indication: DEPRESSION
  4. TEMAZEPAM [Concomitant]
  5. SEPTRA [Concomitant]
  6. PAXIL [Concomitant]
  7. PROTONIX [Concomitant]
  8. PROMETHAZINE [Concomitant]
  9. ASPIRIN [Concomitant]
  10. REGLAN [Concomitant]
  11. OXYCODONE [Concomitant]
  12. ZYRTEC [Concomitant]
  13. METFORMIN HCL [Concomitant]
  14. ZOSYN [Concomitant]
  15. PREDNISONE [Concomitant]
  16. HYDROCHLOROTHIAZIDE [Concomitant]
  17. IBUPROFEN [Concomitant]
  18. MOTRIN [Concomitant]
  19. ALLEGRA [Concomitant]
  20. ALPRAZOLAM [Concomitant]
  21. PRANDIN ^KUHN^ [Concomitant]
     Dosage: UNK
  22. STARLIX [Concomitant]
  23. POTASSIUM CHLORIDE [Concomitant]
  24. BLACK COHOSH [Concomitant]
  25. ZOLADEX [Concomitant]
  26. AUGMENTIN '125' [Concomitant]
  27. DIOVAN [Concomitant]
  28. LEXAPRO [Concomitant]
  29. ARIMIDEX [Concomitant]
     Indication: BREAST CANCER
  30. MONOPRIL [Concomitant]
     Indication: HYPERTENSION
  31. NEURONTIN [Concomitant]
  32. GLYBURIDE AND METFORMIN HCL [Concomitant]
  33. TOPROL-XL [Concomitant]
  34. VIOXX [Concomitant]
  35. BENADRYL ^PFIZER WARNER-LAMBERT^ [Concomitant]
  36. OXYCODONE HCL [Concomitant]
  37. BENAZEPRIL HYDROCHLORIDE [Concomitant]
  38. FERROUS SULFATE TAB [Concomitant]
  39. VICODIN [Concomitant]
  40. DILAUDID [Concomitant]
     Dosage: 2 MG, UNK
  41. OXYCONTIN [Concomitant]
     Indication: BONE PAIN
     Dosage: 80 MG, QD
     Dates: start: 20010101
  42. PHENERGAN [Concomitant]
  43. RIFAMPIN [Concomitant]
  44. LANTUS [Concomitant]
  45. OXYGEN [Concomitant]
  46. DOXEPIN [Concomitant]
     Indication: DEPRESSION
  47. XANAX [Concomitant]
  48. ALFAXALONE [Concomitant]
  49. VICOPROFEN [Concomitant]
  50. ZOFRAN [Concomitant]
     Dosage: 4 MG, UNK
  51. ULTRAM [Concomitant]
  52. ANACIN [Concomitant]

REACTIONS (100)
  - OSTEONECROSIS OF JAW [None]
  - LYMPHOEDEMA [None]
  - INTERVERTEBRAL DISC PROTRUSION [None]
  - HOT FLUSH [None]
  - VOMITING [None]
  - COCCYDYNIA [None]
  - EYE PAIN [None]
  - UTERINE HAEMORRHAGE [None]
  - HEPATOMEGALY [None]
  - CARDIOMEGALY [None]
  - HYPOTENSION [None]
  - PNEUMONIA [None]
  - ANAEMIA [None]
  - HEPATIC STEATOSIS [None]
  - NAUSEA [None]
  - NASAL CONGESTION [None]
  - EXCORIATION [None]
  - ARTHROPATHY [None]
  - NEURODERMATITIS [None]
  - VITREOUS FLOATERS [None]
  - URETERAL DISORDER [None]
  - HIATUS HERNIA [None]
  - ATAXIA [None]
  - HYPOXIA [None]
  - MICROCYTIC ANAEMIA [None]
  - CHEMICAL POISONING [None]
  - PULMONARY EMBOLISM [None]
  - ABSCESS NECK [None]
  - SKIN LESION [None]
  - ARTHRALGIA [None]
  - MOUTH ULCERATION [None]
  - DENTAL CARIES [None]
  - LUNG NEOPLASM [None]
  - DYSPNOEA [None]
  - RETINOPATHY [None]
  - ACCOMMODATION DISORDER [None]
  - LACRIMATION INCREASED [None]
  - VENOUS ANGIOMA OF BRAIN [None]
  - MULTI-ORGAN FAILURE [None]
  - DIZZINESS [None]
  - HEADACHE [None]
  - ORAL CANDIDIASIS [None]
  - INTERVERTEBRAL DISC DEGENERATION [None]
  - SEPSIS [None]
  - CONSTIPATION [None]
  - ALTERED VISUAL DEPTH PERCEPTION [None]
  - DEHYDRATION [None]
  - ATELECTASIS [None]
  - LABYRINTHITIS [None]
  - OSTEOMYELITIS [None]
  - GINGIVAL DISORDER [None]
  - OEDEMA [None]
  - HYPOGLYCAEMIA [None]
  - ULCER [None]
  - VISUAL IMPAIRMENT [None]
  - CELLULITIS [None]
  - RASH [None]
  - HEAD INJURY [None]
  - SINUSITIS [None]
  - CONFUSIONAL STATE [None]
  - TOOTH DISORDER [None]
  - FACIAL PAIN [None]
  - JOINT SWELLING [None]
  - FATIGUE [None]
  - DIPLOPIA [None]
  - PAIN [None]
  - VERTIGO [None]
  - ADENOMYOSIS [None]
  - ALTERED STATE OF CONSCIOUSNESS [None]
  - TRANSIENT ISCHAEMIC ATTACK [None]
  - WOUND HAEMORRHAGE [None]
  - COLITIS [None]
  - FALL [None]
  - URINARY TRACT INFECTION [None]
  - PAIN IN JAW [None]
  - WOUND [None]
  - BACK PAIN [None]
  - WEIGHT INCREASED [None]
  - PARAESTHESIA [None]
  - IRON DEFICIENCY ANAEMIA [None]
  - NEPHROLITHIASIS [None]
  - WOUND INFECTION STAPHYLOCOCCAL [None]
  - HYPOKALAEMIA [None]
  - PYREXIA [None]
  - SKIN DISORDER [None]
  - VISION BLURRED [None]
  - APHASIA [None]
  - OESOPHAGITIS [None]
  - LACERATION [None]
  - GINGIVAL PAIN [None]
  - JAW DISORDER [None]
  - TONGUE INJURY [None]
  - DIABETES MELLITUS [None]
  - WITHDRAWAL SYNDROME [None]
  - COUGH [None]
  - MIGRAINE [None]
  - ABDOMINAL PAIN [None]
  - PELVIC FLOOR MUSCLE WEAKNESS [None]
  - DIARRHOEA [None]
  - RENAL FAILURE ACUTE [None]
